FAERS Safety Report 15416299 (Version 2)
Quarter: 2020Q4

REPORT INFORMATION
  Report Type: Report from Study
  Country: US (occurrence: US)
  Receive Date: 20180923
  Receipt Date: 20201130
  Transmission Date: 20210113
  Serious: Yes (Hospitalization)
  Sender: FDA-Public Use
  Company Number: US-CELGENEUS-USA-20180906225

PATIENT
  Age: 57 Year
  Sex: Male
  Weight: 71.2 kg

DRUGS (17)
  1. DECADRON [Suspect]
     Active Substance: DEXAMETHASONE
     Dosage: 12 MILLIGRAM
     Route: 041
     Dates: start: 20140520, end: 20160820
  2. VELCADE [Concomitant]
     Active Substance: BORTEZOMIB
     Indication: PRODUCT USED FOR UNKNOWN INDICATION
     Route: 041
     Dates: start: 20131129, end: 20131206
  3. VELCADE [Concomitant]
     Active Substance: BORTEZOMIB
     Dosage: 1.3 MILLIGRAM/SQ. METER
     Route: 058
     Dates: start: 20140217, end: 20140513
  4. THALOMID [Concomitant]
     Active Substance: THALIDOMIDE
     Indication: PRODUCT USED FOR UNKNOWN INDICATION
     Route: 048
     Dates: start: 20131229, end: 20140124
  5. ADRIAMYCIN [Concomitant]
     Active Substance: DOXORUBICIN HYDROCHLORIDE
     Indication: PRODUCT USED FOR UNKNOWN INDICATION
     Dosage: 580 MILLIGRAM
     Route: 041
     Dates: start: 20131129, end: 20131202
  6. KYPROLIS [Suspect]
     Active Substance: CARFILZOMIB
     Dosage: 50
     Route: 041
     Dates: start: 20170131, end: 20180913
  7. LEVEMIR [Concomitant]
     Active Substance: INSULIN DETEMIR
     Indication: PRODUCT USED FOR UNKNOWN INDICATION
     Dosage: 21 IU (INTERNATIONAL UNIT)
     Route: 058
  8. VELCADE [Concomitant]
     Active Substance: BORTEZOMIB
     Dosage: 1.3 MILLIGRAM/SQ. METER
     Route: 058
     Dates: start: 20140520, end: 20160820
  9. VELCADE [Concomitant]
     Active Substance: BORTEZOMIB
     Dosage: 1.3 MILLIGRAM/SQ. METER
     Route: 058
     Dates: start: 20160823, end: 20170110
  10. CYTOXAN [Concomitant]
     Active Substance: CYCLOPHOSPHAMIDE
     Indication: PRODUCT USED FOR UNKNOWN INDICATION
     Dosage: 580 MILLIGRAM
     Route: 041
     Dates: start: 20131129, end: 20131202
  11. REVLIMID [Suspect]
     Active Substance: LENALIDOMIDE
     Indication: PLASMA CELL MYELOMA
     Dosage: 10 MILLIGRAM
     Route: 048
     Dates: start: 20170124
  12. METFORMIN [Concomitant]
     Active Substance: METFORMIN HYDROCHLORIDE
     Indication: PRODUCT USED FOR UNKNOWN INDICATION
     Route: 065
     Dates: start: 2018
  13. NOVOLOG [Concomitant]
     Active Substance: INSULIN ASPART
     Indication: PRODUCT USED FOR UNKNOWN INDICATION
     Dosage: 12 IU (INTERNATIONAL UNIT)
     Route: 058
  14. DECADRON [Suspect]
     Active Substance: DEXAMETHASONE
     Indication: PLASMA CELL MYELOMA
     Dosage: 12 MILLIGRAM
     Route: 041
     Dates: start: 20131129, end: 20131206
  15. VELCADE [Concomitant]
     Active Substance: BORTEZOMIB
     Dosage: 2 MILLIGRAM/SQ. METER
     Route: 041
     Dates: start: 20131206, end: 20140123
  16. DECADRON [Suspect]
     Active Substance: DEXAMETHASONE
     Dosage: 12 MILLIGRAM
     Route: 048
     Dates: start: 20140217, end: 20140513
  17. KYPROLIS [Suspect]
     Active Substance: CARFILZOMIB
     Indication: PLASMA CELL MYELOMA
     Route: 041
     Dates: start: 20170124

REACTIONS (1)
  - Fatigue [Recovered/Resolved]

NARRATIVE: CASE EVENT DATE: 20180810
